FAERS Safety Report 6112954-6 (Version None)
Quarter: 2009Q1

REPORT INFORMATION
  Report Type: 
  Country: None (occurrence: None)
  Receive Date: 20090312
  Receipt Date: 20090303
  Transmission Date: 20090719
  Serious: Yes (Death)
  Sender: FDA-Public Use
  Company Number: US-PURDUE-USA_2009_0036585

PATIENT
  Age: 35 Year
  Sex: Female
  Weight: 79 kg

DRUGS (7)
  1. OXYCONTIN [Suspect]
     Indication: PAIN
     Dosage: 80 MG, Q12H
     Route: 048
     Dates: start: 20081029
  2. SOMA [Concomitant]
     Indication: PAIN
     Dosage: 350 MG, NOCTE
     Route: 048
  3. NORCO [Concomitant]
     Indication: PAIN
     Dosage: UNK MG, TID
     Route: 048
  4. METHADONE HCL [Suspect]
     Indication: DRUG ABUSE
     Dosage: UNK MG, UNK
  5. DIAZEPAN                           /00762201/ [Suspect]
     Indication: DRUG USE FOR UNKNOWN INDICATION
     Dosage: UNK MG, UNK
  6. ALPRAZOLAM [Suspect]
     Indication: DRUG USE FOR UNKNOWN INDICATION
     Dosage: UNK, UNK
  7. DIPHENHYDRAMINE HCL [Suspect]
     Indication: DRUG USE FOR UNKNOWN INDICATION
     Dosage: UNK, UNK

REACTIONS (1)
  - DRUG TOXICITY [None]
